FAERS Safety Report 7041675-0 (Version None)
Quarter: 2010Q3

REPORT INFORMATION
  Report Type: 
  Country: None (occurrence: None)
  Receive Date: 20100929
  Receipt Date: 20100826
  Transmission Date: 20110219
  Serious: No
  Sender: FDA-Public Use
  Company Number: US-WYE-H17144010

PATIENT
  Age: 47 Year
  Sex: Female
  Weight: 52.66 kg

DRUGS (2)
  1. PRISTIQ [Suspect]
     Indication: DEPRESSION
     Dosage: 50 MG 1X PER 1 DAY
     Dates: start: 20100821
  2. PRISTIQ [Suspect]
     Indication: FIBROMYALGIA
     Dosage: 50 MG 1X PER 1 DAY
     Dates: start: 20100821

REACTIONS (1)
  - INCONTINENCE [None]
